FAERS Safety Report 7763718-9 (Version None)
Quarter: 2011Q3

REPORT INFORMATION
  Report Type: 
  Country: None (occurrence: None)
  Receive Date: 20110921
  Receipt Date: 20110906
  Transmission Date: 20111222
  Serious: Yes (Hospitalization, Other)
  Sender: FDA-Public Use
  Company Number: GB-RANBAXY-2010RR-30305

PATIENT
  Age: 83 Year
  Sex: Female

DRUGS (14)
  1. METHADONE HCL [Suspect]
     Indication: COUGH
     Route: 048
  2. ACETAMINOPHEN [Concomitant]
     Indication: CANCER PAIN
     Route: 065
  3. TRAMADOL HCL [Suspect]
     Indication: BREAST CANCER METASTATIC
  4. CODEINE SULFATE [Concomitant]
     Indication: CANCER PAIN
     Route: 065
  5. OXYCODONE HCL [Suspect]
     Indication: CANCER PAIN
     Dosage: 2.5 MG, UNK
     Route: 065
  6. ACETAMINOPHEN [Concomitant]
     Indication: PAIN MANAGEMENT
  7. CELECOXIB [Concomitant]
     Indication: CANCER PAIN
     Route: 065
  8. PAMIDRONATE DISODIUM [Concomitant]
     Indication: PRODUCT USED FOR UNKNOWN INDICATION
     Route: 042
  9. FENTANYL [Suspect]
     Indication: PRODUCT USED FOR UNKNOWN INDICATION
  10. TRAMADOL HCL [Suspect]
     Indication: CANCER PAIN
     Dosage: 50 MG, UNK
     Route: 065
  11. ACETAMINPHEN AND CODEINE PHOSPHATE [Suspect]
     Indication: CANCER PAIN
     Route: 065
  12. DEXTROMORAMIDE [Suspect]
     Indication: CANCER PAIN
     Dosage: 5 MG, UNK
     Route: 065
  13. MORPHINE SULFATE [Suspect]
     Indication: CANCER PAIN
     Dosage: 5 MG, UNK
     Route: 065
  14. FENTANYL [Suspect]
     Indication: CANCER PAIN
     Dosage: 200 UG, UNK
     Route: 048

REACTIONS (8)
  - FLUSHING [None]
  - DRUG HYPERSENSITIVITY [None]
  - DIZZINESS [None]
  - FEELING HOT [None]
  - PRURITUS [None]
  - VOMITING [None]
  - TYPE I HYPERSENSITIVITY [None]
  - HYPERHIDROSIS [None]
